FAERS Safety Report 20746394 (Version 1)
Quarter: 2022Q2

REPORT INFORMATION
  Report Type: Other
  Country: None (occurrence: CA)
  Receive Date: 20220425
  Receipt Date: 20220425
  Transmission Date: 20220721
  Serious: Yes (Life-Threatening, Hospitalization, Other)
  Sender: FDA-Public Use
  Company Number: CA-Jacobus Pharmaceutical Company, Inc.-2128127

PATIENT
  Age: 62 Year
  Sex: Female
  Weight: 80 kg

DRUGS (30)
  1. DAPSONE [Suspect]
     Active Substance: DAPSONE
     Route: 048
  2. ALLOPURINOL [Concomitant]
     Active Substance: ALLOPURINOL
  3. ACETAMINOPHEN [Concomitant]
     Active Substance: ACETAMINOPHEN
  4. ANTACID [Concomitant]
     Active Substance: ALUMINUM HYDROXIDE\CALCIUM CARBONATE\DIMETHICONE\MAGNESIUM HYDROXIDE
  5. CALCIUM CARBONATE [Concomitant]
     Active Substance: CALCIUM CARBONATE
  6. CHLORHEXIDINE GLUCONANTE [Concomitant]
     Active Substance: CHLORHEXIDINE GLUCONATE
  7. VITAMIN D [Concomitant]
     Active Substance: VITAMIN D NOS
  8. DEXAMETHASONE [Concomitant]
     Active Substance: DEXAMETHASONE
  9. DIMENHYDRINATE [Concomitant]
     Active Substance: DIMENHYDRINATE
  10. DIPHENHYDRAMINE [Concomitant]
     Active Substance: DIPHENHYDRAMINE
  11. DOXORUBICIN HYDROCHLORIDE [Concomitant]
     Active Substance: DOXORUBICIN HYDROCHLORIDE
  12. FRAGMIN [Concomitant]
     Active Substance: DALTEPARIN SODIUM
  13. HYDROMORPHONE HCL [Concomitant]
     Active Substance: HYDROMORPHONE HYDROCHLORIDE
  14. LEUCOVORIN [Concomitant]
     Active Substance: LEUCOVORIN
  15. LORAZEPAM [Concomitant]
     Active Substance: LORAZEPAM
  16. METHOTREXATE [Concomitant]
     Active Substance: METHOTREXATE
  17. METOCLOPRAMIDE [Concomitant]
     Active Substance: METOCLOPRAMIDE
  18. MYCAMINE [Concomitant]
     Active Substance: MICAFUNGIN SODIUM
  19. OLANZAPINE [Concomitant]
     Active Substance: OLANZAPINE
  20. ONDANSETRON [Concomitant]
     Active Substance: ONDANSETRON
  21. PANTOPRAZOLE SODIUM [Concomitant]
     Active Substance: PANTOPRAZOLE SODIUM
  22. PAROXETINE [Concomitant]
     Active Substance: PAROXETINE
  23. LYOPHILIZED PEGASPARGASE [Concomitant]
     Active Substance: PEGASPARGASE
  24. POLYETHYLENE GLYCOL 3350 [Concomitant]
     Active Substance: POLYETHYLENE GLYCOL 3350
  25. POTASSIUM CHLORIDE [Concomitant]
     Active Substance: POTASSIUM CHLORIDE
  26. SENNOSIDES [Concomitant]
     Active Substance: SENNOSIDES
  27. SODIUM BICARBONATE [Concomitant]
     Active Substance: SODIUM BICARBONATE
  28. VALACYCLOVIR [Concomitant]
     Active Substance: VALACYCLOVIR HYDROCHLORIDE
  29. VINCRISTINE SULFATE [Concomitant]
     Active Substance: VINCRISTINE SULFATE
  30. ESZOPICLONE [Concomitant]
     Active Substance: ESZOPICLONE

REACTIONS (6)
  - Febrile neutropenia [Unknown]
  - Glucose-6-phosphate dehydrogenase deficiency [Unknown]
  - Hyperbilirubinaemia [Unknown]
  - Methaemoglobinaemia [Unknown]
  - Pneumonia [Unknown]
  - Respiratory depression [Unknown]
